FAERS Safety Report 18875581 (Version 1)
Quarter: 2021Q1

REPORT INFORMATION
  Report Type: Spontaneous
  Country: MX (occurrence: MX)
  Receive Date: 20210210
  Receipt Date: 20210210
  Transmission Date: 20210420
  Serious: Yes (Other)
  Sender: FDA-Public Use
  Company Number: MX-PFIZER INC-2021098891

PATIENT
  Sex: Male

DRUGS (1)
  1. ZYVOXAM [Suspect]
     Active Substance: LINEZOLID
     Dosage: 600 MG, 2X/DAY

REACTIONS (1)
  - Bradycardia [Unknown]
